FAERS Safety Report 9850002 (Version 1)
Quarter: 2014Q1

REPORT INFORMATION
  Report Type: Spontaneous
  Country: US (occurrence: None)
  Receive Date: 20140127
  Receipt Date: 20140127
  Transmission Date: 20141002
  Serious: Yes (Other)
  Sender: FDA-Public Use
  Company Number: None

PATIENT
  Sex: 0

DRUGS (2)
  1. EXCEDRIN MIGRAINE [Suspect]
  2. EXCEDRIN EXTRA STRENGTH CAPLETS [Suspect]

REACTIONS (2)
  - Product label issue [None]
  - Product dosage form issue [None]
